FAERS Safety Report 24128820 (Version 1)
Quarter: 2024Q3

REPORT INFORMATION
  Report Type: Report from Study
  Country: ES (occurrence: ES)
  Receive Date: 20240723
  Receipt Date: 20240723
  Transmission Date: 20241016
  Serious: Yes (Hospitalization)
  Sender: BIOVITRUM
  Company Number: ES-AstraZeneca-2021A902262

PATIENT
  Age: 9 Day
  Sex: Male

DRUGS (1)
  1. SYNAGIS [Suspect]
     Active Substance: PALIVIZUMAB
     Indication: Antiviral prophylaxis
     Route: 030

REACTIONS (2)
  - Bronchiolitis [Unknown]
  - Bacteraemia [Unknown]

NARRATIVE: CASE EVENT DATE: 20211120
